FAERS Safety Report 6893194-X (Version None)
Quarter: 2010Q3

REPORT INFORMATION
  Report Type: 
  Country: None (occurrence: None)
  Receive Date: 20100731
  Receipt Date: 20090622
  Transmission Date: 20110219
  Serious: No
  Sender: FDA-Public Use
  Company Number: US-PFIZER INC-2009207214

PATIENT
  Sex: Female
  Weight: 83.9 kg

DRUGS (4)
  1. GABAPENTIN [Suspect]
     Indication: NERVE INJURY
     Dosage: 300 MG, 3X/DAY
  2. LYRICA [Concomitant]
     Dosage: UNK
  3. NAPROSYN [Concomitant]
  4. CELEBREX [Concomitant]
     Dosage: UNK

REACTIONS (1)
  - DRUG INEFFECTIVE [None]
